FAERS Safety Report 14448475 (Version 1)
Quarter: 2018Q1

REPORT INFORMATION
  Report Type: Spontaneous
  Country: JP (occurrence: JP)
  Receive Date: 20180126
  Receipt Date: 20180126
  Transmission Date: 20180509
  Serious: Yes (Other)
  Sender: FDA-Public Use
  Company Number: JP-PFIZER INC-2017524916

PATIENT
  Sex: Female

DRUGS (5)
  1. OXALIPLATIN 50MG/10ML HOSPIRA [Suspect]
     Active Substance: OXALIPLATIN
     Dosage: 139 MG, DAILY
     Route: 064
     Dates: start: 20171107, end: 20171128
  2. OXALIPLATIN 50MG/10ML HOSPIRA [Suspect]
     Active Substance: OXALIPLATIN
     Indication: GASTRIC CANCER
     Dosage: 109.2 MG, DAILY
     Route: 064
     Dates: start: 20171107, end: 20171128
  3. TS-1 [Suspect]
     Active Substance: GIMERACIL\OTERACIL\TEGAFUR
     Indication: GASTRIC CANCER
     Dosage: 80 MG, DAILY
     Route: 064
     Dates: start: 20171107, end: 20171218
  4. DECADRON [Suspect]
     Active Substance: DEXAMETHASONE
     Indication: GASTRIC CANCER
     Dosage: 8 MG, DAILY
     Route: 064
     Dates: start: 20171108, end: 20171130
  5. TS-1 [Suspect]
     Active Substance: GIMERACIL\OTERACIL\TEGAFUR
     Dosage: 100 MG, DAILY
     Route: 064
     Dates: start: 20171107, end: 20171218

REACTIONS (4)
  - Foetal distress syndrome [Unknown]
  - Premature delivery [Unknown]
  - Maternal exposure during pregnancy [Unknown]
  - Foetal growth restriction [Unknown]
